FAERS Safety Report 12781568 (Version 1)
Quarter: 2016Q3

REPORT INFORMATION
  Report Type: Spontaneous
  Country: US (occurrence: US)
  Receive Date: 20160926
  Receipt Date: 20160926
  Transmission Date: 20161109
  Serious: No
  Sender: FDA-Public Use
  Company Number: US-ALLERGAN-1648656

PATIENT
  Sex: Female

DRUGS (2)
  1. CARAFATE [Suspect]
     Active Substance: SUCRALFATE
     Indication: GASTROINTESTINAL DISORDER
     Dosage: 100 MG/ML, BID
     Route: 048
     Dates: start: 20150925, end: 20150927
  2. PREDNISONE. [Concomitant]
     Active Substance: PREDNISONE
     Indication: PRODUCT USED FOR UNKNOWN INDICATION

REACTIONS (2)
  - Vomiting [Recovered/Resolved]
  - Nausea [Recovered/Resolved]

NARRATIVE: CASE EVENT DATE: 20150926
